FAERS Safety Report 4375384-3 (Version None)
Quarter: 2004Q2

REPORT INFORMATION
  Report Type: 
  Country: None (occurrence: None)
  Receive Date: 20040607
  Receipt Date: 20040526
  Transmission Date: 20050107
  Serious: No
  Sender: FDA-Public Use
  Company Number: 04H-163-0262206-00

PATIENT

DRUGS (13)
  1. DOBUTAMINE HCL [Suspect]
  2. TAZICEF [Suspect]
  3. CAPTOPRIL [Suspect]
  4. FUROSEMIDE [Concomitant]
  5. BUMETANIDE [Concomitant]
  6. ENALAPRIL MALEATE [Concomitant]
  7. DIGOXIN [Concomitant]
  8. EPINEPHRINE [Concomitant]
  9. SODIUM NITROPRUSSIDE [Concomitant]
  10. DOPAMINE HCL [Concomitant]
  11. VANCOMYCIN [Concomitant]
  12. CEFTAZIDIME [Concomitant]
  13. CEFAZOLIN [Concomitant]

REACTIONS (2)
  - EOSINOPHILIA [None]
  - EOSINOPHILIC MYOCARDITIS [None]
